FAERS Safety Report 25307627 (Version 2)
Quarter: 2025Q2

REPORT INFORMATION
  Report Type: Spontaneous
  Country: PK (occurrence: PK)
  Receive Date: 20250513
  Receipt Date: 20250616
  Transmission Date: 20250717
  Serious: Yes (Other)
  Sender: PFIZER
  Company Number: PK-PFIZER INC-PV202300158922

PATIENT
  Age: 68 Year
  Sex: Female
  Weight: 64 kg

DRUGS (38)
  1. IBRANCE [Suspect]
     Active Substance: PALBOCICLIB
     Indication: Invasive breast carcinoma
     Route: 048
  2. IBRANCE [Suspect]
     Active Substance: PALBOCICLIB
     Route: 048
  3. IBRANCE [Suspect]
     Active Substance: PALBOCICLIB
     Route: 048
     Dates: start: 20240829
  4. LETROZOLE [Concomitant]
     Active Substance: LETROZOLE
     Dosage: 1 DF, 1X/DAY (OD)
     Route: 048
  5. ALPRAZOLAM [Concomitant]
     Active Substance: ALPRAZOLAM
     Route: 048
  6. AZOMAX [Concomitant]
     Dosage: 1 TABLET PER ORAL O.D (FOR 7 DAYS)
     Route: 048
  7. DIETARY SUPPLEMENT [Concomitant]
     Active Substance: DIETARY SUPPLEMENT
     Dosage: UNK, 2X/DAY (2 SCOOP BD)
     Route: 048
  8. BIOYETIN [Concomitant]
     Dosage: 4000 IU, WEEKLY
     Route: 058
  9. CARSEL [Concomitant]
     Dosage: 50 MG, 1X/DAY
     Route: 048
  10. CHEWCAL [Concomitant]
     Dosage: 1 DF, 1X/DAY (OD)
     Route: 048
  11. CLINDAMYCIN [Concomitant]
     Active Substance: CLINDAMYCIN
     Dosage: 1 CAPSULE PER ORAL TDS (COMPLETE 14 DAYS)
     Route: 048
  12. ESPASEVIT [Concomitant]
     Dosage: 8 MG, 3X/DAY (30 MINUTS BEFORE MEALS)
     Route: 048
  13. EPOTIV [Concomitant]
     Route: 058
  14. ENSURE [Concomitant]
     Active Substance: AMINO ACIDS\DEXTROSE\ELECTROLYTES NOS\SOYBEAN OIL\VITAMINS
     Dosage: UNK, 3X/DAY (3 SCOOP TDS, AS DIRECTED)
     Route: 048
  15. ESPRIT [Concomitant]
     Dosage: 10 MG, 1X/DAY
     Route: 048
  16. FEMAPLEX [Concomitant]
     Dosage: 2.5 MG, 1X/DAY
     Route: 048
  17. FEFOL VIT [Concomitant]
     Dosage: 1 DF, 1X/DAY (OD)
     Route: 048
  18. FLUOXETINE HYDROCHLORIDE [Concomitant]
     Active Substance: FLUOXETINE HYDROCHLORIDE
     Dosage: 20 MG, 1X/DAY (OD)
     Route: 048
  19. FLUOXETINE HYDROCHLORIDE [Concomitant]
     Active Substance: FLUOXETINE HYDROCHLORIDE
     Dosage: 20 MG, 2X/DAY(BD)
     Route: 048
  20. FULVESTRANT [Concomitant]
     Active Substance: FULVESTRANT
  21. GABICA [Concomitant]
     Dosage: 50 MG, 1X/DAY (OD)
     Route: 048
  22. IBERET FOLIC [Concomitant]
     Dosage: UNK, 1X/DAY
     Route: 048
  23. IBERET FOLIC [Concomitant]
     Dosage: 1 DF, 1X/DAY
     Route: 048
  24. INHIBITOL [Concomitant]
     Dosage: 30 MG, 1X/DAY (OD)
     Route: 048
  25. LANSOMED [Concomitant]
     Dosage: 30 MG, 1X/DAY (1 CAPSULE  30 MINUTES BEFORE MEALS)
     Route: 048
  26. LETROZOLE [Concomitant]
     Active Substance: LETROZOLE
  27. MOTILIUM [Concomitant]
     Active Substance: DOMPERIDONE
     Dosage: 10 MG, 3X/DAY (TDS 30 MINUTES BEFORE MEALS.)
     Route: 048
  28. MOTILIUM [Concomitant]
     Active Substance: DOMPERIDONE
     Dosage: 10 MG, 3X/DAY (TDS)
     Route: 048
  29. NEOGAB [Concomitant]
     Dosage: 300 MG, 3X/DAY (TDS)
     Route: 048
  30. NERVIN [ALPRAZOLAM] [Concomitant]
     Route: 048
  31. NORVASC [Concomitant]
     Active Substance: AMLODIPINE BESYLATE
     Dosage: 10 MG, 1X/DAY
     Route: 048
  32. RISEK INSTA [Concomitant]
     Dosage: 40 MG, 1X/DAY (AT BED TIME, 30 MINUTS BEFORE MEALS)
  33. SKILAX [Concomitant]
     Indication: Constipation
     Route: 048
  34. TRAMADOL [Concomitant]
     Active Substance: TRAMADOL
     Dosage: 1 DF, 3X/DAY (TDS)
     Route: 048
  35. TRES ORIX FORTE [Concomitant]
     Dosage: UNK, 3X/DAY (2 TSF TDS)
     Route: 048
  36. XEDEXO [Concomitant]
     Dosage: 1 DF, 1X/DAY (3/25) (OD)
     Route: 048
  37. XARELTO [Concomitant]
     Active Substance: RIVAROXABAN
     Dosage: 15 MG, 2X/DAY (BD)
     Route: 048
  38. ZOLEDRONIC ACID [Concomitant]
     Active Substance: ZOLEDRONIC ACID
     Route: 042

REACTIONS (2)
  - Haematotoxicity [Unknown]
  - Blood pressure diastolic decreased [Recovered/Resolved]
